FAERS Safety Report 23820525 (Version 2)
Quarter: 2024Q2

REPORT INFORMATION
  Report Type: Spontaneous
  Country: US (occurrence: US)
  Receive Date: 20240506
  Receipt Date: 20240604
  Transmission Date: 20240716
  Serious: Yes (Disabling, Other)
  Sender: FDA-Public Use
  Company Number: US-REGENERON PHARMACEUTICALS, INC.-2024-055649

PATIENT
  Sex: Female

DRUGS (3)
  1. EYLEA HD [Suspect]
     Active Substance: AFLIBERCEPT
     Indication: Neovascular age-related macular degeneration
     Dosage: 8 MG, Q4W (EVERY 4 WEEKS) IN RIGHT EYE; FORMULATION: HD VIAL
     Dates: start: 20240122, end: 20240122
  2. EYLEA HD [Suspect]
     Active Substance: AFLIBERCEPT
     Dosage: 8 MG, Q4W (EVERY 4 WEEKS) IN RIGHT EYE; FORMULATION: HD VIAL
     Dates: start: 20240219, end: 20240219
  3. EYLEA HD [Suspect]
     Active Substance: AFLIBERCEPT
     Dosage: 8 MG, Q4W (EVERY 4 WEEKS) IN RIGHT EYE; FORMULATION: HD VIAL
     Dates: start: 20240325, end: 20240325

REACTIONS (3)
  - Blindness unilateral [Not Recovered/Not Resolved]
  - Non-infectious endophthalmitis [Not Recovered/Not Resolved]
  - Wrong technique in product usage process [Not Recovered/Not Resolved]

NARRATIVE: CASE EVENT DATE: 20240122
